FAERS Safety Report 9784055 (Version 1)
Quarter: 2013Q4

REPORT INFORMATION
  Report Type: Spontaneous
  Country: FR (occurrence: FR)
  Receive Date: 20131226
  Receipt Date: 20131226
  Transmission Date: 20140711
  Serious: Yes (Other)
  Sender: FDA-Public Use
  Company Number: FR-MYLANLABS-2013S1028002

PATIENT
  Age: 52 Year
  Sex: 0

DRUGS (1)
  1. CLOMIPRAMINE [Suspect]
     Indication: DEPRESSION
     Route: 048

REACTIONS (4)
  - Eyelid oedema [Recovered/Resolved]
  - Local swelling [Recovered/Resolved]
  - Lip oedema [Recovered/Resolved]
  - Pruritus [Recovered/Resolved]
